FAERS Safety Report 23839817 (Version 3)
Quarter: 2025Q2

REPORT INFORMATION
  Report Type: Spontaneous
  Country: US (occurrence: US)
  Receive Date: 20240510
  Receipt Date: 20250403
  Transmission Date: 20250717
  Serious: Yes (Hospitalization, Disabling, Other)
  Sender: MERCK SHARP AND DOHME
  Company Number: US-009507513-2405USA001010

PATIENT
  Age: 47 Year
  Sex: Female

DRUGS (41)
  1. KEYTRUDA [Suspect]
     Active Substance: PEMBROLIZUMAB
     Indication: Triple negative breast cancer
     Dosage: DOSE DESCRIPTION : 200 MILLIGRAM, Q3W?DAILY DOSE : 9.4 MILLIGRAM?REGIMEN DOSE : 4800  MILLIGRAM
     Route: 042
     Dates: start: 20221014, end: 20240214
  2. CARBOPLATIN [Suspect]
     Active Substance: CARBOPLATIN
     Indication: Triple negative breast cancer
     Dosage: DOSE DESCRIPTION : 230 MILLIGRAM, QW?DAILY DOSE : 32.89 MILLIGRAM?REGIMEN DOSE : 2990  MILLIGRAM
     Dates: start: 20221027, end: 20230119
  3. PACLITAXEL [Suspect]
     Active Substance: PACLITAXEL
     Indication: Triple negative breast cancer
     Dosage: DOSE DESCRIPTION : 170 MILLIGRAM, QW?DAILY DOSE : 24.31 MILLIGRAM?REGIMEN DOSE : 2210  MILLIGRAM
     Dates: start: 20221027, end: 20230119
  4. CYCLOPHOSPHAMIDE [Suspect]
     Active Substance: CYCLOPHOSPHAMIDE
     Indication: Triple negative breast cancer
     Dosage: DOSE DESCRIPTION : 1290 MILLIGRAM, Q3W?DAILY DOSE : 60.63 MILLIGRAM?REGIMEN DOSE : 5160  MILLIGRAM
     Dates: start: 20230202, end: 20230417
  5. DOXORUBICIN [Suspect]
     Active Substance: DOXORUBICIN
     Indication: Triple negative breast cancer
     Dosage: DOSE DESCRIPTION : 129 MILLIGRAM, Q3W?DAILY DOSE : 6.063 MILLIGRAM?REGIMEN DOSE : 516  MILLIGRAM
     Dates: start: 20230202, end: 20230417
  6. XANAX [Concomitant]
     Active Substance: ALPRAZOLAM
  7. LYRICA [Concomitant]
     Active Substance: PREGABALIN
  8. CYMBALTA [Concomitant]
     Active Substance: DULOXETINE HYDROCHLORIDE
  9. AMITRIPTYLINE [Concomitant]
     Active Substance: AMITRIPTYLINE
  10. AMLODIPINE [Concomitant]
     Active Substance: AMLODIPINE BESYLATE
  11. MOUNJARO [Concomitant]
     Active Substance: TIRZEPATIDE
  12. CARVEDILOL [Concomitant]
     Active Substance: CARVEDILOL
  13. ANUCORT SUPPOSITORIES [Concomitant]
  14. FUROSEMIDE [Concomitant]
     Active Substance: FUROSEMIDE
  15. PROBIOTICS NOS [Concomitant]
     Active Substance: PROBIOTICS NOS
  16. BUTRANS [Concomitant]
     Active Substance: BUPRENORPHINE
  17. CELEBREX [Concomitant]
     Active Substance: CELECOXIB
  18. ALLEGRA [Concomitant]
     Active Substance: FEXOFENADINE HYDROCHLORIDE
  19. ATIVAN [Concomitant]
     Active Substance: LORAZEPAM
  20. ACTEMRA [Concomitant]
     Active Substance: TOCILIZUMAB
  21. MIRALAX [Concomitant]
     Active Substance: POLYETHYLENE GLYCOL 3350
  22. HYDROXYZINE [Concomitant]
     Active Substance: HYDROXYZINE HYDROCHLORIDE
  23. VITAMIN C [Concomitant]
     Active Substance: ASCORBIC ACID
  24. VITAMIN B [Concomitant]
     Active Substance: VITAMIN B
  25. DICYCLOMINE [Concomitant]
     Active Substance: DICYCLOMINE HYDROCHLORIDE
  26. MECLIZINE [Concomitant]
     Active Substance: MECLIZINE HYDROCHLORIDE
  27. OMEPRAZOLE [Concomitant]
     Active Substance: OMEPRAZOLE
  28. ZYRTEC [Concomitant]
     Active Substance: CETIRIZINE HYDROCHLORIDE
  29. ALBUTEROL [Concomitant]
     Active Substance: ALBUTEROL
  30. COLACE [Concomitant]
     Active Substance: DOCUSATE SODIUM
  31. LOMOTIL [Concomitant]
     Active Substance: ATROPINE SULFATE\DIPHENOXYLATE HYDROCHLORIDE
  32. VITAMIN D3 [Concomitant]
     Active Substance: CHOLECALCIFEROL
  33. PREDNISONE [Concomitant]
     Active Substance: PREDNISONE
  34. PLAQUENIL [Concomitant]
     Active Substance: HYDROXYCHLOROQUINE SULFATE
  35. ONDANSETRON [Concomitant]
     Active Substance: ONDANSETRON
  36. COMPAZINE [Concomitant]
     Active Substance: PROCHLORPERAZINE MALEATE
  37. FAMOTIDINE [Concomitant]
     Active Substance: FAMOTIDINE
  38. METFORMIN [Concomitant]
     Active Substance: METFORMIN HYDROCHLORIDE
  39. ATORVASTATIN [Concomitant]
     Active Substance: ATORVASTATIN
  40. ASPIRIN [Concomitant]
     Active Substance: ASPIRIN
  41. magnesium pills [Concomitant]

REACTIONS (41)
  - Immune-mediated neuropathy [Not Recovered/Not Resolved]
  - Respiratory failure [Unknown]
  - Necrosis [Unknown]
  - Pulmonary artery dilatation [Unknown]
  - Psychological trauma [Not Recovered/Not Resolved]
  - Intracranial aneurysm [Unknown]
  - Pancytopenia [Unknown]
  - Immune-mediated arthritis [Not Recovered/Not Resolved]
  - Immune-mediated lung disease [Not Recovered/Not Resolved]
  - Frustration tolerance decreased [Not Recovered/Not Resolved]
  - Toxicity to various agents [Unknown]
  - Stomatitis [Unknown]
  - Weight increased [Unknown]
  - Herpes zoster [Unknown]
  - Dysuria [Unknown]
  - Flank pain [Unknown]
  - Red cell distribution width increased [Unknown]
  - Albumin globulin ratio decreased [Unknown]
  - Aspartate aminotransferase decreased [Unknown]
  - Plantar fasciitis [Unknown]
  - Hot flush [Unknown]
  - Haemorrhoids [Unknown]
  - Brain fog [Unknown]
  - Vertigo [Unknown]
  - Dry mouth [Unknown]
  - Fatigue [Unknown]
  - Constipation [Unknown]
  - Insurance issue [Unknown]
  - Irritable bowel syndrome [Unknown]
  - Dizziness [Unknown]
  - Onychoclasis [Unknown]
  - Pneumocystis jirovecii pneumonia [Unknown]
  - Type 2 diabetes mellitus [Unknown]
  - Oxygen therapy [Unknown]
  - Hospitalisation [Unknown]
  - Chest discomfort [Unknown]
  - Peripheral swelling [Unknown]
  - Joint swelling [Unknown]
  - Diarrhoea [Unknown]
  - Fibromyalgia [Unknown]
  - Pulmonary hypertension [Unknown]

NARRATIVE: CASE EVENT DATE: 20221201
